FAERS Safety Report 21127746 (Version 1)
Quarter: 2022Q3

REPORT INFORMATION
  Report Type: Spontaneous
  Country: US (occurrence: US)
  Receive Date: 20220725
  Receipt Date: 20220725
  Transmission Date: 20221027
  Serious: No
  Sender: FDA-Public Use
  Company Number: US-ABBVIE-22K-163-4243109-00

PATIENT
  Sex: Female
  Weight: 49.032 kg

DRUGS (1)
  1. SYNTHROID [Suspect]
     Active Substance: LEVOTHYROXINE SODIUM
     Indication: Hypothyroidism
     Dosage: EXCEPT SUNDAY
     Route: 048
     Dates: start: 20121214

REACTIONS (2)
  - Osteoporosis [Not Recovered/Not Resolved]
  - Fatigue [Unknown]
